FAERS Safety Report 20458691 (Version 1)
Quarter: 2022Q1

REPORT INFORMATION
  Report Type: Spontaneous
  Country: US (occurrence: US)
  Receive Date: 20220211
  Receipt Date: 20220211
  Transmission Date: 20220424
  Serious: Yes (Other)
  Sender: FDA-Public Use
  Company Number: US-AMGEN-USASP2022023529

PATIENT
  Sex: Female

DRUGS (2)
  1. ENBREL [Suspect]
     Active Substance: ETANERCEPT
     Indication: Product used for unknown indication
     Dosage: UNK
     Route: 065
  2. HUMIRA [Suspect]
     Active Substance: ADALIMUMAB
     Indication: Ankylosing spondylitis
     Dosage: UNK CITRATE FREE
     Route: 058

REACTIONS (6)
  - Ankylosing spondylitis [Not Recovered/Not Resolved]
  - Illness [Recovered/Resolved]
  - Eye disorder [Not Recovered/Not Resolved]
  - Rash papular [Recovered/Resolved]
  - Skin discolouration [Recovered/Resolved]
  - Product dispensing error [Unknown]
